FAERS Safety Report 8375851-1 (Version None)
Quarter: 2012Q2

REPORT INFORMATION
  Report Type: 
  Country: None (occurrence: None)
  Receive Date: 20120522
  Receipt Date: 20120516
  Transmission Date: 20120825
  Serious: Yes (Death, Hospitalization, Other)
  Sender: FDA-Public Use
  Company Number: FR-BAYER-201018826GPV

PATIENT
  Age: 81 Year
  Sex: Male

DRUGS (4)
  1. NOCTAMIDE [Concomitant]
     Dosage: 2 MG, TOTAL DAILY DOSE
     Dates: start: 20080101
  2. NEXAVAR [Suspect]
     Indication: HEPATIC NEOPLASM MALIGNANT
     Dosage: 400 MG, BID
     Route: 048
     Dates: start: 20091201, end: 20100227
  3. PERMIXON [Concomitant]
     Dosage: 2 CP,  TOTAL DAILY DOSE
     Dates: start: 20050101
  4. VALSARTAN [Concomitant]
     Dosage: 80 MG, TOTAL DAILY DOSE
     Dates: start: 20050101

REACTIONS (2)
  - GENERAL PHYSICAL HEALTH DETERIORATION [None]
  - ENCEPHALOPATHY [None]
